FAERS Safety Report 7439364-3 (Version None)
Quarter: 2011Q2

REPORT INFORMATION
  Report Type: 
  Country: None (occurrence: None)
  Receive Date: 20110427
  Receipt Date: 20110425
  Transmission Date: 20111010
  Serious: No
  Sender: FDA-Public Use
  Company Number: US-PFIZER INC-2010152831

PATIENT
  Sex: Female
  Weight: 82.086 kg

DRUGS (5)
  1. PRISTIQ [Suspect]
     Indication: PANIC DISORDER
  2. ZANTAC [Concomitant]
     Indication: ABDOMINAL DISCOMFORT
     Dosage: UNK
  3. PRISTIQ [Suspect]
     Indication: DEPRESSION
     Dosage: 50 MG, 1X/DAY
     Route: 048
     Dates: start: 20101118, end: 20101119
  4. PRISTIQ [Suspect]
     Indication: ANXIETY
  5. PRISTIQ [Suspect]
     Indication: OBSESSIVE-COMPULSIVE DISORDER

REACTIONS (6)
  - LOGORRHOEA [None]
  - CHEST PAIN [None]
  - HYPOAESTHESIA FACIAL [None]
  - PANIC ATTACK [None]
  - HYPOAESTHESIA [None]
  - INSOMNIA [None]
